FAERS Safety Report 5398441-1 (Version None)
Quarter: 2007Q3

REPORT INFORMATION
  Report Type: 
  Country: None (occurrence: None)
  Receive Date: 20070724
  Receipt Date: 20070718
  Transmission Date: 20080115
  Serious: Yes (Death)
  Sender: FDA-Public Use
  Company Number: 056-C5013-07070917

PATIENT
  Age: 72 Year
  Sex: Female

DRUGS (2)
  1. CC-5013 (LENALIDOMIDE) (CAPSULES) [Suspect]
     Indication: MULTIPLE MYELOMA
     Dosage: 15 MG, DAILY, ORAL
     Route: 048
     Dates: start: 20070510, end: 20070620
  2. DEXAMETHASONE TAB [Concomitant]

REACTIONS (1)
  - CHRONIC RESPIRATORY FAILURE [None]
